FAERS Safety Report 5450587-5 (Version None)
Quarter: 2007Q3

REPORT INFORMATION
  Report Type: 
  Country: None (occurrence: None)
  Receive Date: 20070912
  Receipt Date: 20070907
  Transmission Date: 20080115
  Serious: Yes (Hospitalization, Other)
  Sender: FDA-Public Use
  Company Number: DE-ABBOTT-07P-062-0375556-00

PATIENT
  Sex: Male
  Weight: 87 kg

DRUGS (3)
  1. HUMIRA [Suspect]
     Indication: PSORIATIC ARTHROPATHY
     Route: 058
     Dates: start: 20070401, end: 20070608
  2. METHOTREXATE [Concomitant]
     Indication: PSORIATIC ARTHROPATHY
  3. GLUCOCORTICOIDS [Concomitant]
     Indication: PSORIATIC ARTHROPATHY
     Route: 048

REACTIONS (3)
  - IMPAIRED HEALING [None]
  - PURULENCE [None]
  - THYROID ADENOMA [None]
